FAERS Safety Report 7134614-5 (Version None)
Quarter: 2010Q4

REPORT INFORMATION
  Report Type: 
  Country: None (occurrence: None)
  Receive Date: 20101203
  Receipt Date: 20101122
  Transmission Date: 20110411
  Serious: Yes (Other)
  Sender: FDA-Public Use
  Company Number: PHHY2010US79511

PATIENT
  Sex: Female

DRUGS (2)
  1. FEMARA [Suspect]
     Dosage: 2.5 MG, QD
     Route: 048
  2. CHEMOTHERAPEUTICS NOS [Concomitant]

REACTIONS (1)
  - TUMOUR MARKER INCREASED [None]
